FAERS Safety Report 6701296-3 (Version None)
Quarter: 2010Q2

REPORT INFORMATION
  Report Type: 
  Country: None (occurrence: None)
  Receive Date: 20100429
  Receipt Date: 20100420
  Transmission Date: 20101027
  Serious: Yes (Other)
  Sender: FDA-Public Use
  Company Number: US-BIOGENIDEC-2009BI026873

PATIENT
  Age: 63 Year
  Sex: Female

DRUGS (1)
  1. TYSABRI [Suspect]
     Indication: MULTIPLE SCLEROSIS
     Route: 042
     Dates: start: 20090514

REACTIONS (10)
  - BALANCE DISORDER [None]
  - FALL [None]
  - FATIGUE [None]
  - GAIT DISTURBANCE [None]
  - HYPOTONIA [None]
  - MASKED FACIES [None]
  - PAIN [None]
  - PARKINSON'S DISEASE [None]
  - SKIN LACERATION [None]
  - TREMOR [None]
